FAERS Safety Report 4289236-0 (Version None)
Quarter: 2004Q1

REPORT INFORMATION
  Report Type: 
  Country: None (occurrence: None)
  Receive Date: 20040206
  Receipt Date: 20040127
  Transmission Date: 20041129
  Serious: Yes (Hospitalization)
  Sender: FDA-Public Use
  Company Number: 2004-00336

PATIENT
  Age: 29 Year
  Sex: Male

DRUGS (2)
  1. IBUPROFEN [Suspect]
     Indication: PAIN IN EXTREMITY
     Dosage: 200MG, DAILY, ORAL
     Route: 048
  2. CIPROFIBRATE (CIPROFIBRATE) [Suspect]
     Indication: HYPERLIPIDAEMIA
     Dosage: SEE IMAGE ORAL
     Route: 048
     Dates: start: 19941001

REACTIONS (3)
  - DRUG INTERACTION [None]
  - RENAL FAILURE ACUTE [None]
  - RHABDOMYOLYSIS [None]
